FAERS Safety Report 19120016 (Version 1)
Quarter: 2021Q2

REPORT INFORMATION
  Report Type: Spontaneous
  Country: US (occurrence: US)
  Receive Date: 20210412
  Receipt Date: 20210412
  Transmission Date: 20210717
  Serious: No
  Sender: FDA-Public Use
  Company Number: US-SA-2021SA117852

PATIENT
  Sex: Male

DRUGS (5)
  1. DUPIXENT [Suspect]
     Active Substance: DUPILUMAB
     Indication: DERMATITIS ATOPIC
     Dosage: 10 MG
     Route: 003
  2. DUPIXENT [Suspect]
     Active Substance: DUPILUMAB
     Indication: DERMATITIS ATOPIC
     Dosage: 10MG
     Route: 003
  3. DUPIXENT [Suspect]
     Active Substance: DUPILUMAB
     Indication: DERMATITIS ATOPIC
     Dosage: 10 MG
     Route: 003
  4. CLARITINE [Concomitant]
     Active Substance: LORATADINE
  5. DUPIXENT [Suspect]
     Active Substance: DUPILUMAB
     Indication: DERMATITIS ATOPIC
     Dosage: 10MG
     Route: 003

REACTIONS (5)
  - Incorrect dose administered [Unknown]
  - Arthralgia [Unknown]
  - Discomfort [Unknown]
  - Drug ineffective [Unknown]
  - Incorrect route of product administration [Unknown]
